FAERS Safety Report 16286409 (Version 1)
Quarter: 2019Q2

REPORT INFORMATION
  Report Type: Spontaneous
  Country: FR (occurrence: FR)
  Receive Date: 20190508
  Receipt Date: 20190508
  Transmission Date: 20190711
  Serious: Yes (Hospitalization)
  Sender: FDA-Public Use
  Company Number: FR-ASTRAZENECA-2019SE65855

PATIENT
  Age: 53 Year
  Sex: Male
  Weight: 83 kg

DRUGS (6)
  1. VALIUM [Suspect]
     Active Substance: DIAZEPAM
     Indication: INTENTIONAL OVERDOSE
     Dosage: 10.0DF UNKNOWN
     Route: 048
     Dates: start: 20190319, end: 20190319
  2. QUETIAPINE. [Suspect]
     Active Substance: QUETIAPINE
     Indication: INTENTIONAL OVERDOSE
     Dosage: 11.6G UNKNOWN
     Route: 048
     Dates: start: 20190319, end: 20190319
  3. LOXAPINE. [Suspect]
     Active Substance: LOXAPINE
     Route: 048
     Dates: end: 20190320
  4. LORMETAZEPAM [Concomitant]
     Active Substance: LORMETAZEPAM
  5. MIRTAZAPINE. [Concomitant]
     Active Substance: MIRTAZAPINE
  6. ALIMEMAZINE [Suspect]
     Active Substance: TRIMEPRAZINE
     Route: 048
     Dates: end: 20190320

REACTIONS (3)
  - Coma [Recovered/Resolved]
  - Tachycardia [Recovered/Resolved]
  - Tachypnoea [Recovered/Resolved]

NARRATIVE: CASE EVENT DATE: 20190320
